FAERS Safety Report 9733673 (Version 1)
Quarter: 2013Q4

REPORT INFORMATION
  Report Type: Report from Study
  Country: US (occurrence: US)
  Receive Date: 20131205
  Receipt Date: 20131205
  Transmission Date: 20140711
  Serious: Yes (Death)
  Sender: FDA-Public Use
  Company Number: US-PURDUE-USA-2013-0109154

PATIENT
  Age: 51 Year
  Sex: Female

DRUGS (1)
  1. OXY CR TAB [Suspect]
     Indication: CANCER PAIN
     Dosage: 30 MG, Q12H
     Route: 048
     Dates: start: 20131017

REACTIONS (1)
  - Malignant neoplasm progression [Fatal]
